FAERS Safety Report 6768312-4 (Version None)
Quarter: 2010Q2

REPORT INFORMATION
  Report Type: 
  Country: None (occurrence: None)
  Receive Date: 20100614
  Receipt Date: 20100602
  Transmission Date: 20101027
  Serious: Yes (Hospitalization, Other)
  Sender: FDA-Public Use
  Company Number: CA-NAPPMUNDI-CAN-2010-0001391

PATIENT
  Sex: Female

DRUGS (5)
  1. DILAUDID [Suspect]
     Indication: DRUG USE FOR UNKNOWN INDICATION
     Route: 065
  2. DURAGESIC-100 [Suspect]
     Indication: DRUG USE FOR UNKNOWN INDICATION
     Dosage: 25 MCG, Q72H
     Route: 062
  3. DURAGESIC-100 [Suspect]
     Dosage: 50 MCG, Q1H
  4. LYRICA [Concomitant]
     Indication: DRUG USE FOR UNKNOWN INDICATION
     Dosage: UNK
     Route: 065
  5. OXYCONTIN [Concomitant]
     Indication: DRUG USE FOR UNKNOWN INDICATION
     Route: 065

REACTIONS (5)
  - DRUG PRESCRIBING ERROR [None]
  - GANGRENE [None]
  - HALLUCINATION [None]
  - SEDATION [None]
  - WRONG TECHNIQUE IN DRUG USAGE PROCESS [None]
